FAERS Safety Report 21458745 (Version 2)
Quarter: 2022Q4

REPORT INFORMATION
  Report Type: Spontaneous
  Country: US (occurrence: US)
  Receive Date: 20221014
  Receipt Date: 20221019
  Transmission Date: 20230113
  Serious: Yes (Other)
  Sender: FDA-Public Use
  Company Number: US-PFIZER INC-2016582445

PATIENT
  Age: 41 Year
  Sex: Female
  Weight: 113.4 kg

DRUGS (24)
  1. RAPAMUNE [Suspect]
     Active Substance: SIROLIMUS
     Indication: Klippel-Trenaunay syndrome
     Dosage: 1 MG, 2X/DAY
     Route: 048
  2. RAPAMUNE [Suspect]
     Active Substance: SIROLIMUS
     Indication: Congenital musculoskeletal disorder of limbs
     Dosage: 1 MG, 1X/DAY
     Route: 048
     Dates: start: 201603
  3. RAPAMUNE [Suspect]
     Active Substance: SIROLIMUS
     Dosage: UNK, ALTERNATE DAY
     Route: 048
  4. RAPAMUNE [Suspect]
     Active Substance: SIROLIMUS
     Dosage: UNK, EVERY 2 DAYS
     Route: 048
  5. RAPAMUNE [Suspect]
     Active Substance: SIROLIMUS
     Dosage: 1 MG, 1X/DAY
     Route: 048
     Dates: start: 201605
  6. RAPAMUNE [Suspect]
     Active Substance: SIROLIMUS
     Dosage: 2 DF, DAILY (0.5MG TABLET, TAKE 2 TABLETS)
     Route: 048
  7. COUMADIN [Concomitant]
     Active Substance: WARFARIN SODIUM
     Indication: Pulmonary embolism
     Dosage: UNK (4MG TWICE A WEEK ON MONDAY AND FRIDAY AND 6MG THE REST OFTHE WEEK)
  8. TYLENOL [Concomitant]
     Active Substance: ACETAMINOPHEN
     Indication: Pain
     Dosage: UNK UNK, AS NEEDED (1-2 TABLETS EVERY 6 HOURS AS NEEDED)
     Route: 048
  9. BIO CLEANSE [Concomitant]
     Dosage: UNK UNK, 1X/DAY (1 EVERY MORNING)
  10. CLINDAMYCIN [Concomitant]
     Active Substance: CLINDAMYCIN
     Dosage: 300 MG, 4X/DAY (1 CAPSULE BY MOUTH FOUR TIMES A DAY AS NEEDED)
     Route: 048
  11. DAPSONE [Concomitant]
     Active Substance: DAPSONE
     Dosage: 25 MG, 1X/DAY (1 TABLET ONE TIME DAILY)
     Route: 048
  12. DIFLUCAN [Concomitant]
     Active Substance: FLUCONAZOLE
     Dosage: 150 MG, AS NEEDED (1 TABLET AS NEEDED)
     Route: 048
  13. DULOXETINE [Concomitant]
     Active Substance: DULOXETINE
     Dosage: 60 MG, 1X/DAY (1 CAPSULE ONE TIME DAILY)
     Route: 048
  14. FERROUS SULFATE [Concomitant]
     Active Substance: FERROUS SULFATE
     Dosage: 140 MG, 2X/DAY (1 TABLET TWO TIMES A DAY)
     Route: 048
  15. FUROSEMIDE [Concomitant]
     Active Substance: FUROSEMIDE
     Dosage: UNK, 1X/DAY (1-2 TABLETS ONE TIME DAILY)
     Route: 048
  16. GABAPENTIN [Concomitant]
     Active Substance: GABAPENTIN
     Dosage: UNK UNK, 2X/DAY (2-4 CAPSULES TWO TIMES A DAY; 2 CAPS IN THE AM 4 CAPS IN THE PM)
     Route: 048
  17. LEVAQUIN [Concomitant]
     Active Substance: LEVOFLOXACIN
     Dosage: 500 MG, 1X/DAY (1 TABLET ONE TIME DAILY)
     Route: 048
  18. LEVOTHYROXINE [Concomitant]
     Active Substance: LEVOTHYROXINE
     Dosage: 137 UG, 1X/DAY (1 TABLET ONE TIME DAILY)
     Route: 048
  19. NORTRIPTYLINE [Concomitant]
     Active Substance: NORTRIPTYLINE
     Dosage: 50 MG, 1X/DAY (2 CAPSULES EVERY BEDTIME)
     Route: 048
  20. ROXICODONE [Concomitant]
     Active Substance: OXYCODONE HYDROCHLORIDE
     Indication: Pain
     Dosage: UNK, AS NEEDED (1-2 TABLETS EVERY 3 HOURS AS NEEDED)
     Route: 048
  21. OXYCONTIN [Concomitant]
     Active Substance: OXYCODONE HYDROCHLORIDE
     Dosage: 30 MG, 2X/DAY (1 TABLET EVERY 12 HOURS)
     Route: 048
  22. PLEXUS SLIM [Concomitant]
     Dosage: UNK UNK, 1X/DAY (1 EVERY MORNING)
  23. OMEPRAZOLE [Concomitant]
     Active Substance: OMEPRAZOLE
     Dosage: 40 MG, 1X/DAY (1 TABLET ONE TIME DAILY)
     Route: 048
  24. WELLBUTRIN [Concomitant]
     Active Substance: BUPROPION HYDROCHLORIDE
     Dosage: 150 MG, 2X/DAY (1 TABLET TWO TIMES A DAY)
     Route: 048

REACTIONS (3)
  - Haemorrhage [Unknown]
  - Drug effective for unapproved indication [Unknown]
  - Off label use [Unknown]
